APPROVED DRUG PRODUCT: LOPROX
Active Ingredient: CICLOPIROX
Strength: 0.77%
Dosage Form/Route: CREAM;TOPICAL
Application: N018748 | Product #001 | TE Code: AB
Applicant: MEDIMETRIKS PHARMACEUTICALS INC
Approved: Dec 30, 1982 | RLD: Yes | RS: Yes | Type: RX